FAERS Safety Report 5674707-2 (Version None)
Quarter: 2008Q1

REPORT INFORMATION
  Report Type: 
  Country: None (occurrence: None)
  Receive Date: 20080320
  Receipt Date: 20080317
  Transmission Date: 20080703
  Serious: Yes (Other)
  Sender: FDA-Public Use
  Company Number: B0513250A

PATIENT
  Sex: Female

DRUGS (1)
  1. ELONTRIL [Suspect]
     Indication: BIPOLAR DISORDER
     Dosage: 75MG PER DAY
     Route: 048

REACTIONS (3)
  - CONFUSIONAL STATE [None]
  - CONSCIOUSNESS FLUCTUATING [None]
  - MEMORY IMPAIRMENT [None]
